FAERS Safety Report 20687053 (Version 1)
Quarter: 2022Q2

REPORT INFORMATION
  Report Type: Spontaneous
  Country: SK (occurrence: SK)
  Receive Date: 20220407
  Receipt Date: 20220407
  Transmission Date: 20220721
  Serious: Yes (Hospitalization)
  Sender: FDA-Public Use
  Company Number: SK-STRIDES ARCOLAB LIMITED-2022SP003440

PATIENT
  Age: 50 Year
  Sex: Female
  Weight: 100 kg

DRUGS (12)
  1. HYDROCORTISONE [Interacting]
     Active Substance: HYDROCORTISONE
     Indication: Product used for unknown indication
     Dosage: UNK
     Route: 065
  2. CETIRIZINE [Interacting]
     Active Substance: CETIRIZINE HYDROCHLORIDE
     Indication: Product used for unknown indication
     Dosage: UNK
     Route: 065
  3. DEXAMETHASONE [Suspect]
     Active Substance: DEXAMETHASONE
     Indication: COVID-19 pneumonia
     Dosage: UNK
     Route: 065
  4. IVERMECTIN [Interacting]
     Active Substance: IVERMECTIN
     Indication: COVID-19
     Dosage: 5 TABLETS OF 3 MG IVERMECTIN EVERY 8 H (TOTAL 45 MG/DAY)
     Route: 048
  5. IVERMECTIN [Interacting]
     Active Substance: IVERMECTIN
     Dosage: IV VETERINARY IVERMECTIN 20MG/2ML INFUSION FROM A 20ML VIAL CONTAINING CONCENTRATION OF 10MG/1ML.UNK
     Route: 042
  6. OFLOXACIN [Interacting]
     Active Substance: OFLOXACIN
     Indication: Product used for unknown indication
     Dosage: UNK
     Route: 065
  7. ACETYLCYSTEINE [Concomitant]
     Active Substance: ACETYLCYSTEINE
     Indication: COVID-19 pneumonia
     Dosage: UNK
     Route: 065
  8. CHOLECALCIFEROL [Concomitant]
     Active Substance: CHOLECALCIFEROL
     Indication: COVID-19 pneumonia
     Dosage: UNK
     Route: 065
  9. VITAMIN C [Concomitant]
     Active Substance: ASCORBIC ACID
     Indication: COVID-19 pneumonia
     Dosage: UNK
     Route: 065
  10. POLYOXIDONIUM [Concomitant]
     Indication: COVID-19 pneumonia
     Dosage: UNK
     Route: 065
  11. SILYMARINE [Concomitant]
     Indication: COVID-19 pneumonia
     Dosage: UNK
     Route: 065
  12. BISULEPIN [Concomitant]
     Active Substance: BISULEPIN
     Indication: COVID-19 pneumonia
     Dosage: UNK
     Route: 065

REACTIONS (12)
  - Neurotoxicity [Recovered/Resolved]
  - Drug interaction [Unknown]
  - Urinary incontinence [Unknown]
  - Mental disorder [Recovered/Resolved]
  - Unresponsive to stimuli [Unknown]
  - Quadriparesis [Recovered/Resolved]
  - Myoclonus [Unknown]
  - Extrapyramidal disorder [Unknown]
  - Salivary hypersecretion [Unknown]
  - Mydriasis [Unknown]
  - Vertigo [Unknown]
  - Off label use [Unknown]
